FAERS Safety Report 22646794 (Version 1)
Quarter: 2023Q2

REPORT INFORMATION
  Report Type: Spontaneous
  Country: US (occurrence: None)
  Receive Date: 20230626
  Receipt Date: 20230626
  Transmission Date: 20230721
  Serious: Yes (Death)
  Sender: FDA-Public Use
  Company Number: None

PATIENT
  Age: 12 Year
  Sex: Male

DRUGS (2)
  1. BETHKIS [Suspect]
     Active Substance: TOBRAMYCIN
     Indication: Sepsis
     Dosage: 300 MG/4ML INHALATION??INHALE 4 ML VIA NEBULIZER TWICE DAILY FOR 28 DAYS ON, THEN 28 DAYS OFF. ?
     Route: 055
     Dates: start: 20220802, end: 20230617
  2. BETHKIS [Suspect]
     Active Substance: TOBRAMYCIN
     Dosage: FREQUENCY : AS DIRECTED;?
     Route: 055

REACTIONS (1)
  - Cardiac arrest [None]

NARRATIVE: CASE EVENT DATE: 20230617
